FAERS Safety Report 13164542 (Version 3)
Quarter: 2017Q4

REPORT INFORMATION
  Report Type: Spontaneous
  Country: US (occurrence: US)
  Receive Date: 20170130
  Receipt Date: 20171228
  Transmission Date: 20180320
  Serious: No
  Sender: FDA-Public Use
  Company Number: US-ABBVIE-16P-163-1628972-00

PATIENT
  Age: 75 Year
  Sex: Male

DRUGS (2)
  1. XTANDI [Suspect]
     Active Substance: ENZALUTAMIDE
     Indication: PROSTATE CANCER
     Route: 048
     Dates: start: 20160220
  2. LUPRON DEPOT [Suspect]
     Active Substance: LEUPROLIDE ACETATE
     Indication: PRODUCT USED FOR UNKNOWN INDICATION
     Route: 050

REACTIONS (3)
  - Fatigue [Not Recovered/Not Resolved]
  - Prostatic specific antigen increased [Unknown]
  - Back pain [Not Recovered/Not Resolved]

NARRATIVE: CASE EVENT DATE: 201602
